FAERS Safety Report 6863404-3 (Version None)
Quarter: 2010Q3

REPORT INFORMATION
  Report Type: 
  Country: None (occurrence: None)
  Receive Date: 20100719
  Receipt Date: 20100712
  Transmission Date: 20110219
  Serious: Yes (Other)
  Sender: FDA-Public Use
  Company Number: 2010SP038443

PATIENT
  Age: 77 Year
  Sex: Female

DRUGS (4)
  1. SAPHRIS [Suspect]
     Indication: SCHIZOPHRENIA
     Dosage: 5 MG; BID; SL
     Route: 060
  2. HALDOL [Suspect]
     Indication: PRODUCT USED FOR UNKNOWN INDICATION
  3. IMIPRAMINE (CON.) [Concomitant]
  4. ATIVAN (CON.) [Concomitant]

REACTIONS (3)
  - INTENTIONAL SELF-INJURY [None]
  - SCRATCH [None]
  - SUICIDAL IDEATION [None]
